FAERS Safety Report 24339201 (Version 1)
Quarter: 2024Q3

REPORT INFORMATION
  Report Type: Spontaneous
  Country: US (occurrence: US)
  Receive Date: 20240919
  Receipt Date: 20240919
  Transmission Date: 20241017
  Serious: No
  Sender: Haleon PLC
  Company Number: US-HALEON-2197331

PATIENT
  Sex: Female

DRUGS (2)
  1. NICODERM CQ [Suspect]
     Active Substance: NICOTINE
     Indication: Attention deficit hyperactivity disorder
  2. NICODERM CQ [Suspect]
     Active Substance: NICOTINE
     Indication: Dementia Alzheimer^s type

REACTIONS (3)
  - Product use in unapproved indication [Unknown]
  - Urticaria [Unknown]
  - Rash erythematous [Unknown]
